FAERS Safety Report 21673672 (Version 2)
Quarter: 2024Q2

REPORT INFORMATION
  Report Type: Report from Study
  Country: US (occurrence: US)
  Receive Date: 20221202
  Receipt Date: 20240413
  Transmission Date: 20240716
  Serious: No
  Sender: FDA-Public Use
  Company Number: US-ABBVIE-4182650

PATIENT
  Sex: Female

DRUGS (2)
  1. SKYRIZI [Suspect]
     Active Substance: RISANKIZUMAB-RZAA
     Indication: Psoriasis
     Dosage: WEEK 0, WEEK 4, THEN EVERY 12 WEEKS THEREAFTER, FORM STRENGTH -15 MILLIGRAMS
     Route: 058
     Dates: start: 20220926, end: 20220926
  2. SKYRIZI [Suspect]
     Active Substance: RISANKIZUMAB-RZAA
     Dosage: WEEK 4, THEN EVERY 12 WEEKS THEREAFTER, ?FORM STRENGTH -15 MILLIGRAMS
     Route: 058
     Dates: start: 2022

REACTIONS (2)
  - Erythema [Unknown]
  - Facial pain [Unknown]
